FAERS Safety Report 10609813 (Version 1)
Quarter: 2014Q4

REPORT INFORMATION
  Report Type: Spontaneous
  Country: IN (occurrence: None)
  Receive Date: 20141124
  Receipt Date: 20141124
  Transmission Date: 20150529
  Serious: Yes (Other)
  Sender: FDA-Public Use
  Company Number: 2014VER00314

PATIENT
  Age: 27 Year
  Sex: Male

DRUGS (1)
  1. ISOTRETINOIN [Suspect]
     Active Substance: ISOTRETINOIN
     Indication: ACNE

REACTIONS (4)
  - Persecutory delusion [None]
  - Sleep disorder [None]
  - Psychotic disorder [None]
  - Feeling abnormal [None]
